FAERS Safety Report 7907345-9 (Version None)
Quarter: 2011Q4

REPORT INFORMATION
  Report Type: 
  Country: None (occurrence: None)
  Receive Date: 20111110
  Receipt Date: 20111102
  Transmission Date: 20120403
  Serious: Yes (Hospitalization)
  Sender: FDA-Public Use
  Company Number: JP-GLAXOSMITHKLINE-B0760899A

PATIENT
  Age: 37 Year
  Sex: Male

DRUGS (5)
  1. RISPERDAL [Concomitant]
     Dosage: 6MG PER DAY
     Route: 048
  2. HIRNAMIN [Concomitant]
     Dosage: 200MG PER DAY
     Route: 048
  3. LITHIUM CARBONATE [Concomitant]
     Route: 048
  4. ZOLOFT [Concomitant]
     Dosage: 150MG PER DAY
     Route: 048
  5. LAMICTAL [Suspect]
     Indication: BIPOLAR DISORDER
     Dosage: 200MG PER DAY
     Route: 048
     Dates: start: 20111001, end: 20111001

REACTIONS (5)
  - IMPULSIVE BEHAVIOUR [None]
  - MANIA [None]
  - AMNESIA [None]
  - FOOT FRACTURE [None]
  - OVERDOSE [None]
